FAERS Safety Report 9587343 (Version 2)
Quarter: 2013Q4

REPORT INFORMATION
  Report Type: Spontaneous
  Country: US (occurrence: US)
  Receive Date: 20131003
  Receipt Date: 20131119
  Transmission Date: 20140711
  Serious: No
  Sender: FDA-Public Use
  Company Number: US-PFIZER INC-2013279746

PATIENT
  Age: 60 Year
  Sex: Male
  Weight: 85.71 kg

DRUGS (7)
  1. INLYTA [Suspect]
     Indication: METASTATIC RENAL CELL CARCINOMA
     Dosage: 5 MG, 2X/DAY
     Route: 048
     Dates: start: 201212, end: 201303
  2. INLYTA [Suspect]
     Dosage: 5 MG, 1X/DAY
     Route: 048
     Dates: start: 201303, end: 201308
  3. INLYTA [Suspect]
     Dosage: 5 MG, 2X/DAY
     Route: 048
     Dates: start: 201308, end: 201309
  4. INLYTA [Suspect]
     Dosage: 2.5 MG (BY CUTTING 5MG TABLET IN HALF), 2X/DAY
     Route: 048
     Dates: start: 20130923
  5. SYNTHROID [Concomitant]
     Indication: HYPOTHYROIDISM
     Dosage: 50 UG, 1X/DAY
     Route: 048
     Dates: start: 2013, end: 2013
  6. SYNTHROID [Concomitant]
     Dosage: 75 UG, 1X/DAY
     Route: 048
     Dates: start: 2013, end: 201309
  7. SYNTHROID [Concomitant]
     Dosage: 112 UG, 1X/DAY
     Route: 048
     Dates: start: 201309

REACTIONS (11)
  - Diarrhoea [Recovering/Resolving]
  - Hypertension [Recovered/Resolved]
  - Dysphonia [Recovered/Resolved]
  - Palmar-plantar erythrodysaesthesia syndrome [Recovered/Resolved]
  - Decreased appetite [Recovered/Resolved]
  - Nausea [Recovered/Resolved]
  - Stomatitis [Recovered/Resolved]
  - Hypothyroidism [Unknown]
  - Malaise [Recovered/Resolved]
  - Disease progression [Unknown]
  - Metastatic renal cell carcinoma [Unknown]
